FAERS Safety Report 24527142 (Version 2)
Quarter: 2024Q4

REPORT INFORMATION
  Report Type: Spontaneous
  Country: JP (occurrence: JP)
  Receive Date: 20241021
  Receipt Date: 20241105
  Transmission Date: 20250114
  Serious: Yes (Hospitalization, Other)
  Sender: TAKEDA
  Company Number: JP-TAKEDA-2024TJP015041

PATIENT
  Age: 55 Year
  Sex: Male

DRUGS (1)
  1. CUVITRU [Suspect]
     Active Substance: HUMAN IMMUNOGLOBULIN G
     Indication: Hypogammaglobulinaemia
     Dosage: 28 GRAM
     Route: 058
     Dates: start: 20241012

REACTIONS (1)
  - Nephrotic syndrome [Unknown]

NARRATIVE: CASE EVENT DATE: 20241001
